FAERS Safety Report 22601222 (Version 2)
Quarter: 2023Q2

REPORT INFORMATION
  Report Type: Spontaneous
  Country: AU (occurrence: AU)
  Receive Date: 20230614
  Receipt Date: 20230629
  Transmission Date: 20230721
  Serious: Yes (Death, Hospitalization, Other)
  Sender: FDA-Public Use
  Company Number: AU-BAXTER-2022BAX031342

PATIENT
  Age: 58 Year
  Sex: Male
  Weight: 143.2 kg

DRUGS (26)
  1. CYCLOPHOSPHAMIDE [Suspect]
     Active Substance: CYCLOPHOSPHAMIDE
     Indication: B-cell lymphoma
     Dosage: 1280 MG
     Route: 042
     Dates: start: 20221209, end: 20221209
  2. CYCLOPHOSPHAMIDE [Suspect]
     Active Substance: CYCLOPHOSPHAMIDE
     Dosage: 1280 MG
     Route: 042
     Dates: start: 20221210, end: 20221210
  3. CYCLOPHOSPHAMIDE [Suspect]
     Active Substance: CYCLOPHOSPHAMIDE
     Dosage: 1280 MG, LAST DOSE PRIOR TO EVENT ONSET DATE
     Route: 042
     Dates: start: 20221211, end: 20221211
  4. CYCLOPHOSPHAMIDE [Suspect]
     Active Substance: CYCLOPHOSPHAMIDE
     Dosage: 1260 MG
     Route: 042
     Dates: start: 20230125, end: 20230125
  5. CYCLOPHOSPHAMIDE [Suspect]
     Active Substance: CYCLOPHOSPHAMIDE
     Dosage: 1260 MG
     Route: 042
     Dates: start: 20230126, end: 20230126
  6. CYCLOPHOSPHAMIDE [Suspect]
     Active Substance: CYCLOPHOSPHAMIDE
     Dosage: 1260 MG
     Route: 042
     Dates: start: 20230127, end: 20230127
  7. FLUDARABINE [Suspect]
     Active Substance: FLUDARABINE PHOSPHATE
     Indication: B-cell lymphoma
     Dosage: 75 MG
     Route: 042
     Dates: start: 20221209, end: 20221209
  8. FLUDARABINE [Suspect]
     Active Substance: FLUDARABINE PHOSPHATE
     Dosage: 75 MG
     Route: 042
     Dates: start: 20221210, end: 20221210
  9. FLUDARABINE [Suspect]
     Active Substance: FLUDARABINE PHOSPHATE
     Dosage: 75 MG, LAST DOSE PRIOR TO EVENT ONSET
     Route: 042
     Dates: start: 20221211, end: 20221211
  10. FLUDARABINE [Suspect]
     Active Substance: FLUDARABINE PHOSPHATE
     Dosage: 75 MG
     Route: 042
     Dates: start: 20230125, end: 20230125
  11. FLUDARABINE [Suspect]
     Active Substance: FLUDARABINE PHOSPHATE
     Dosage: 75 MG
     Route: 042
     Dates: start: 20230126, end: 20230126
  12. FLUDARABINE [Suspect]
     Active Substance: FLUDARABINE PHOSPHATE
     Dosage: 75 MG
     Route: 042
     Dates: start: 20230127, end: 20230127
  13. ALLOPURINOL [Concomitant]
     Active Substance: ALLOPURINOL
     Indication: Prophylaxis
     Dosage: UNK
     Route: 048
     Dates: start: 2022
  14. ALLOPURINOL [Concomitant]
     Active Substance: ALLOPURINOL
     Indication: Gout
  15. ATORVASTATIN [Concomitant]
     Active Substance: ATORVASTATIN
     Indication: Hypercholesterolaemia
     Dosage: UNK
     Route: 048
     Dates: start: 2022
  16. PERINDOPRIL [Concomitant]
     Active Substance: PERINDOPRIL
     Indication: Hypertension
     Dosage: UNK
     Route: 048
     Dates: start: 2020
  17. LAMIVUDINE [Concomitant]
     Active Substance: LAMIVUDINE
     Indication: Chronic hepatitis
     Dosage: UNK
     Route: 048
     Dates: start: 2022
  18. ACETAMINOPHEN [Concomitant]
     Active Substance: ACETAMINOPHEN
     Indication: Product used for unknown indication
     Dosage: AS REQUIRED
     Route: 048
  19. CALCIUM LACTATE\DEXTROSE\POTASSIUM CHLORIDE\SODIUM BICARBONATE\SODIUM [Concomitant]
     Active Substance: CALCIUM LACTATE\DEXTROSE\POTASSIUM CHLORIDE\SODIUM BICARBONATE\SODIUM CHLORIDE
     Indication: Nasal congestion
     Dosage: FLO SINUS RINSE
     Route: 045
     Dates: start: 20221211
  20. CALCIUM LACTATE\DEXTROSE\POTASSIUM CHLORIDE\SODIUM BICARBONATE\SODIUM [Concomitant]
     Active Substance: CALCIUM LACTATE\DEXTROSE\POTASSIUM CHLORIDE\SODIUM BICARBONATE\SODIUM CHLORIDE
     Indication: Rhinorrhoea
  21. METOCLOPRAMIDE [Concomitant]
     Active Substance: METOCLOPRAMIDE
     Indication: Prophylaxis of nausea and vomiting
     Dosage: UNK
     Route: 048
     Dates: start: 20221209, end: 20221223
  22. PENTAMIDINE [Concomitant]
     Active Substance: PENTAMIDINE
     Indication: Prophylaxis
     Dosage: UNK
     Route: 042
     Dates: start: 20221212, end: 20221230
  23. PENTAMIDINE [Concomitant]
     Active Substance: PENTAMIDINE
     Indication: Pneumocystis jirovecii pneumonia
  24. SODIUM CHLORIDE [Concomitant]
     Active Substance: SODIUM CHLORIDE
     Indication: Nasal congestion
     Dosage: UNK
     Route: 045
     Dates: start: 20221214
  25. ENTECAVIR [Concomitant]
     Active Substance: ENTECAVIR
     Indication: Antiviral prophylaxis
     Dosage: UNK
     Route: 048
     Dates: start: 20221209
  26. VALACYCLOVIR [Concomitant]
     Active Substance: VALACYCLOVIR HYDROCHLORIDE
     Indication: Antiviral prophylaxis
     Dosage: UNK
     Route: 048
     Dates: start: 20221209

REACTIONS (8)
  - Disease progression [Fatal]
  - Moraxella infection [Recovered/Resolved]
  - Febrile neutropenia [Recovered/Resolved]
  - Pneumocystis jirovecii pneumonia [Recovered/Resolved]
  - Tachycardia [Recovered/Resolved]
  - Hypoxia [Recovered/Resolved]
  - Hypotension [Recovered/Resolved]
  - Dyspnoea [Recovered/Resolved]

NARRATIVE: CASE EVENT DATE: 20221210
